FAERS Safety Report 5434937-1 (Version None)
Quarter: 2007Q3

REPORT INFORMATION
  Report Type: 
  Country: None (occurrence: None)
  Receive Date: 20070831
  Receipt Date: 20070809
  Transmission Date: 20080115
  Serious: No
  Sender: FDA-Public Use
  Company Number: A0668816A

PATIENT
  Sex: Female

DRUGS (2)
  1. ALLI [Suspect]
     Route: 048
  2. ADVIL LIQUI-GELS [Concomitant]
     Indication: ARTHRITIS
     Route: 048

REACTIONS (1)
  - DRUG INTERACTION [None]
